FAERS Safety Report 9816223 (Version 1)
Quarter: 2014Q1

REPORT INFORMATION
  Report Type: Spontaneous
  Country: US (occurrence: US)
  Receive Date: 20140114
  Receipt Date: 20140114
  Transmission Date: 20141002
  Serious: Yes (Hospitalization)
  Sender: FDA-Public Use
  Company Number: US-BAYER-2014-003396

PATIENT
  Age: 42 Year
  Sex: Male

DRUGS (3)
  1. CALCIUM CARBONATE [Suspect]
     Indication: GASTROOESOPHAGEAL REFLUX DISEASE
     Dosage: 6-8 G AT 4-5 DAYS PER WEEK FOR 8-10 MONTHS
  2. HYDROCHLOROTHIAZID [Suspect]
     Indication: HYPERTENSION
  3. LOSARTAN [Concomitant]
     Indication: HYPERTENSION

REACTIONS (2)
  - Milk-alkali syndrome [Recovering/Resolving]
  - Labelled drug-drug interaction medication error [None]
